FAERS Safety Report 7361210-7 (Version None)
Quarter: 2011Q1

REPORT INFORMATION
  Report Type: 
  Country: None (occurrence: None)
  Receive Date: 20110318
  Receipt Date: 20110304
  Transmission Date: 20110831
  Serious: Yes (Disabling)
  Sender: FDA-Public Use
  Company Number: PHHY2011US17940

PATIENT
  Sex: Female

DRUGS (3)
  1. VITAMIN D [Concomitant]
  2. CALCIUM [Concomitant]
  3. RECLAST [Suspect]
     Dosage: YEARLY
     Route: 042
     Dates: start: 20090101

REACTIONS (2)
  - PAIN [None]
  - TOOTH LOSS [None]
